FAERS Safety Report 7249160-8 (Version None)
Quarter: 2011Q1

REPORT INFORMATION
  Report Type: 
  Country: None (occurrence: None)
  Receive Date: 20110118
  Receipt Date: 20110107
  Transmission Date: 20110831
  Serious: Yes (Hospitalization)
  Sender: FDA-Public Use
  Company Number: TAJPN-10-0654

PATIENT
  Age: 60 Year
  Sex: Female

DRUGS (7)
  1. PYDOXAL (PYRIDOXAL PHOSPHATE) [Concomitant]
  2. ABRAXANE [Suspect]
     Indication: BREAST CANCER
     Dosage: (369 MG)
     Dates: start: 20101110, end: 20101110
  3. NEUROTROPIN (ORGAN LYSATE, STANDARDIZED) [Concomitant]
  4. FEMARA [Concomitant]
  5. CELECOXIB [Concomitant]
  6. DUROTEP [Concomitant]
  7. METHYCOBAL (MECOBALAMIN) [Concomitant]

REACTIONS (7)
  - PERIPHERAL SENSORY NEUROPATHY [None]
  - ALANINE AMINOTRANSFERASE INCREASED [None]
  - BLOOD ALKALINE PHOSPHATASE INCREASED [None]
  - GAIT DISTURBANCE [None]
  - ASPARTATE AMINOTRANSFERASE INCREASED [None]
  - DECREASED APPETITE [None]
  - GAMMA-GLUTAMYLTRANSFERASE INCREASED [None]
